FAERS Safety Report 8880855 (Version 2)
Quarter: 2012Q4

REPORT INFORMATION
  Report Type: 
  Country: US (occurrence: US)
  Receive Date: 20121101
  Receipt Date: 20121206
  Transmission Date: 20130627
  Serious: Yes (Hospitalization, Other)
  Sender: FDA-Public Use
  Company Number: US-ELI_LILLY_AND_COMPANY-US201210007005

PATIENT
  Age: 65 Year
  Sex: Female

DRUGS (13)
  1. CYMBALTA [Suspect]
     Indication: DEPRESSION
     Dosage: 30mg each evening
     Dates: start: 2010, end: 201210
  2. CYMBALTA [Suspect]
     Dosage: 60mg each morning
     Dates: start: 2010, end: 201210
  3. CYMBALTA [Suspect]
     Dosage: 60mg, twice daily
     Dates: start: 201210
  4. XANAX [Concomitant]
     Dosage: 2 df, daily
  5. ATENOLOL [Concomitant]
     Indication: BLOOD PRESSURE
  6. LISINOPRIL [Concomitant]
     Indication: BLOOD PRESSURE
     Dosage: 10mg, daily
  7. NEURONTIN [Concomitant]
  8. PROMETHAZINE [Concomitant]
     Indication: NAUSEA
  9. KLONOPIN [Concomitant]
     Indication: SLEEP DISORDER
     Dosage: 3 df, each evening
  10. ARAVA [Concomitant]
     Indication: ARTHRITIS
     Dosage: 20mg, qd
  11. PROTONIX [Concomitant]
  12. BENTYL [Concomitant]
     Indication: FUNCTIONAL GASTROINTESTINAL DISORDER
  13. CARAFATE [Concomitant]
     Dosage: 1 GM, daily with meals

REACTIONS (15)
  - Colonic stenosis [Recovering/Resolving]
  - Haemorrhage [Unknown]
  - Hypertension [Unknown]
  - Heart rate increased [Unknown]
  - Muscle spasms [Unknown]
  - Crying [Unknown]
  - Decreased appetite [Unknown]
  - Nausea [Unknown]
  - Sleep disorder [Unknown]
  - Gastric disorder [Unknown]
  - Depression [Not Recovered/Not Resolved]
  - Morbid thoughts [Unknown]
  - Pain [Unknown]
  - Back pain [Unknown]
  - Rheumatoid arthritis [Unknown]
